FAERS Safety Report 8212929-7 (Version None)
Quarter: 2012Q1

REPORT INFORMATION
  Report Type: 
  Country: None (occurrence: None)
  Receive Date: 20120315
  Receipt Date: 20120307
  Transmission Date: 20120608
  Serious: Yes (Hospitalization)
  Sender: FDA-Public Use
  Company Number: US-BAYER-2012-023558

PATIENT
  Age: 16 Year
  Sex: Female
  Weight: 83.265 kg

DRUGS (3)
  1. AMOXICILLIN [Concomitant]
     Route: 048
  2. MOTRIN [Concomitant]
     Dosage: 400 MG, EVERY SIX HOUR OR AS NEEDED
     Route: 048
  3. YAZ [Suspect]
     Dosage: UNK
     Dates: end: 20100116

REACTIONS (1)
  - DEEP VEIN THROMBOSIS [None]
